FAERS Safety Report 9380590 (Version 1)
Quarter: 2013Q3

REPORT INFORMATION
  Report Type: Spontaneous
  Country: US (occurrence: US)
  Receive Date: 20130702
  Receipt Date: 20130702
  Transmission Date: 20140515
  Serious: No
  Sender: FDA-Public Use
  Company Number: US-PFIZER INC-2013194430

PATIENT
  Sex: Female

DRUGS (2)
  1. ADVIL [Suspect]
     Indication: ARTHRALGIA
     Dosage: UNK
     Route: 048
  2. PERCOCET [Suspect]
     Indication: ARTHRALGIA
     Dosage: UNK

REACTIONS (4)
  - Drug prescribing error [Unknown]
  - Overdose [Unknown]
  - Rash [Unknown]
  - Paraesthesia [Unknown]
